FAERS Safety Report 8157095 (Version 5)
Quarter: 2015Q3

REPORT INFORMATION
  Report Type: Spontaneous
  Country: US (occurrence: US)
  Receive Date: 20110926
  Receipt Date: 20150923
  Transmission Date: 20151125
  Serious: Yes (Other)
  Sender: FDA-Public Use
  Company Number: US-ASTRAZENECA-2010SE61301

PATIENT
  Age: 58 Year
  Sex: Male

DRUGS (3)
  1. NEXIUM [Suspect]
     Active Substance: ESOMEPRAZOLE MAGNESIUM
     Dosage: TAKING TWICE
     Route: 048
  2. NEXIUM [Suspect]
     Active Substance: ESOMEPRAZOLE MAGNESIUM
     Dosage: DAILY
     Route: 048
  3. CRESTOR [Suspect]
     Active Substance: ROSUVASTATIN CALCIUM
     Indication: PERIPHERAL VASCULAR DISORDER
     Route: 048

REACTIONS (10)
  - Intentional product misuse [Unknown]
  - Mental impairment [Unknown]
  - Irritable bowel syndrome [Unknown]
  - Gastrooesophageal reflux disease [Unknown]
  - Limb discomfort [Unknown]
  - Arteriosclerosis [Not Recovered/Not Resolved]
  - Cerebrovascular accident [Unknown]
  - Abdominal pain upper [Unknown]
  - Drug dose omission [Unknown]
  - Dyspepsia [Unknown]
